FAERS Safety Report 5130908-3 (Version None)
Quarter: 2006Q4

REPORT INFORMATION
  Report Type: 
  Country: None (occurrence: None)
  Receive Date: 20061017
  Receipt Date: 20061017
  Transmission Date: 20070319
  Serious: No
  Sender: FDA-Public Use
  Company Number: None

PATIENT
  Sex: Female
  Weight: 41.7309 kg

DRUGS (3)
  1. FLURAZEPAM [Suspect]
     Indication: INSOMNIA
     Dosage: 15 MG DAILY PO
     Route: 048
     Dates: start: 19980515, end: 20061016
  2. FLURAZEPAM [Suspect]
     Indication: PAIN IN EXTREMITY
     Dosage: 15 MG DAILY PO
     Route: 048
     Dates: start: 19980515, end: 20061016
  3. WESTWARD FLURAZEPAM [Concomitant]

REACTIONS (5)
  - CIRCUMSTANCE OR INFORMATION CAPABLE OF LEADING TO MEDICATION ERROR [None]
  - DRUG HYPERSENSITIVITY [None]
  - DRUG INEFFECTIVE [None]
  - PHARMACEUTICAL PRODUCT COMPLAINT [None]
  - REACTION TO DRUG EXCIPIENTS [None]
